FAERS Safety Report 21459282 (Version 1)
Quarter: 2022Q4

REPORT INFORMATION
  Report Type: Spontaneous
  Country: US (occurrence: None)
  Receive Date: 20221013
  Receipt Date: 20221013
  Transmission Date: 20230113
  Serious: Yes (Death)
  Sender: FDA-Public Use
  Company Number: None

PATIENT
  Sex: Male

DRUGS (13)
  1. MYCOPHENOLIC ACID [Suspect]
     Active Substance: MYCOPHENOLIC ACID
     Indication: Renal transplant
     Route: 048
     Dates: start: 20151016
  2. ALLOPURINOL [Concomitant]
     Active Substance: ALLOPURINOL
  3. ASPIRIN LOW TAB EC [Concomitant]
  4. ATORVASTATIN [Concomitant]
     Active Substance: ATORVASTATIN
  5. BACTRIM TAB [Concomitant]
  6. CLOPIDOGREL TAB [Concomitant]
  7. METOPROLOL TAB [Concomitant]
  8. PENICILLN VK TAB [Concomitant]
  9. PROGRAF [Concomitant]
     Active Substance: TACROLIMUS
  10. SULFAMETHOX POW [Concomitant]
  11. SYNVISC INJ [Concomitant]
  12. TACROLIMUS [Concomitant]
     Active Substance: TACROLIMUS
  13. TACROLIMUS [Concomitant]
     Active Substance: TACROLIMUS

REACTIONS (1)
  - Death [None]
